FAERS Safety Report 7050166-2 (Version None)
Quarter: 2010Q4

REPORT INFORMATION
  Report Type: 
  Country: None (occurrence: None)
  Receive Date: 20101018
  Receipt Date: 20101007
  Transmission Date: 20110411
  Serious: Yes (Death, Hospitalization, Other)
  Sender: FDA-Public Use
  Company Number: FR-ELI_LILLY_AND_COMPANY-FR200711005535

PATIENT
  Sex: Male
  Weight: 72 kg

DRUGS (3)
  1. CIALIS [Suspect]
     Indication: ERECTILE DYSFUNCTION
     Dosage: 20 MG, AS NEEDED
     Route: 048
     Dates: start: 20051101
  2. OLMETEC [Concomitant]
     Indication: HYPERTENSION
  3. HEPSERA [Concomitant]
     Indication: HEPATITIS B
     Dosage: UNK, UNK

REACTIONS (5)
  - AORTIC ANEURYSM [None]
  - CHEST DISCOMFORT [None]
  - DEATH [None]
  - GASTROINTESTINAL DISORDER [None]
  - PERIPHERAL ARTERY ANEURYSM [None]
